FAERS Safety Report 5547875-0 (Version None)
Quarter: 2007Q4

REPORT INFORMATION
  Report Type: 
  Country: None (occurrence: None)
  Receive Date: 20071211
  Receipt Date: 20070327
  Transmission Date: 20080405
  Serious: No
  Sender: FDA-Public Use
  Company Number: US-AMGEN-KDL217172

PATIENT
  Sex: Male

DRUGS (2)
  1. ENBREL [Suspect]
     Indication: PSORIASIS
     Route: 058
     Dates: start: 20070316
  2. SORIATANE [Concomitant]
     Route: 048
     Dates: start: 20050101

REACTIONS (2)
  - LOCALISED INFECTION [None]
  - RASH [None]
